FAERS Safety Report 10265997 (Version 1)
Quarter: 2014Q2

REPORT INFORMATION
  Report Type: Spontaneous
  Country: US (occurrence: US)
  Receive Date: 20140627
  Receipt Date: 20140627
  Transmission Date: 20141212
  Serious: Yes (Hospitalization)
  Sender: FDA-Public Use
  Company Number: US-BAYER-2014-095235

PATIENT
  Age: 49 Year
  Sex: Female

DRUGS (3)
  1. YASMIN [Suspect]
  2. ADVIL [Concomitant]
  3. LORTAB [Concomitant]
     Indication: PAIN

REACTIONS (1)
  - Pulmonary embolism [None]
